FAERS Safety Report 8474857-1 (Version None)
Quarter: 2012Q2

REPORT INFORMATION
  Report Type: 
  Country: None (occurrence: None)
  Receive Date: 20120628
  Receipt Date: 20120621
  Transmission Date: 20120825
  Serious: Yes (Hospitalization)
  Sender: FDA-Public Use
  Company Number: FR-PFIZER INC-2012149333

PATIENT
  Age: 77 Year
  Sex: Male

DRUGS (8)
  1. PROPRANOLOL [Interacting]
     Dosage: 40 MG, UNK
     Route: 048
     Dates: start: 20110101
  2. EFFEXOR [Concomitant]
  3. PERMIXON [Concomitant]
  4. CRESTOR [Concomitant]
  5. XANAX [Concomitant]
  6. ASPIRIN [Concomitant]
  7. DOXAZOSIN MESYLATE [Suspect]
     Dosage: 4 MG, 1X/DAY
     Route: 048
     Dates: start: 20120224, end: 20120226
  8. PLAVIX [Concomitant]

REACTIONS (3)
  - HYPOTENSION [None]
  - MALAISE [None]
  - DRUG INTERACTION [None]
